FAERS Safety Report 5239294-1 (Version None)
Quarter: 2007Q1

REPORT INFORMATION
  Report Type: 
  Country: None (occurrence: None)
  Receive Date: 20070216
  Receipt Date: 20070209
  Transmission Date: 20070707
  Serious: Yes (Other)
  Sender: FDA-Public Use
  Company Number: 2007AP00927

PATIENT
  Age: 28209 Day
  Sex: Male
  Weight: 70 kg

DRUGS (1)
  1. ATACAND [Suspect]
     Indication: ESSENTIAL HYPERTENSION
     Route: 048
     Dates: start: 20060905, end: 20060915

REACTIONS (1)
  - VISUAL FIELD DEFECT [None]
